FAERS Safety Report 4804329-4 (Version None)
Quarter: 2005Q4

REPORT INFORMATION
  Report Type: 
  Country: None (occurrence: None)
  Receive Date: 20051017
  Receipt Date: 20051005
  Transmission Date: 20060501
  Serious: Yes (Other)
  Sender: FDA-Public Use
  Company Number: 2005138121

PATIENT
  Age: 87 Year
  Sex: Male
  Weight: 69.8539 kg

DRUGS (4)
  1. DILANTIN [Suspect]
     Indication: CONVULSION
     Dosage: 300 MG (300 MG, QOD), ORAL; 400 MG (400 MG, QOD), ORAL
     Route: 048
     Dates: start: 19670101
  2. DILANTIN [Suspect]
     Indication: CONVULSION
     Dosage: 300 MG (300 MG, QOD), ORAL; 400 MG (400 MG, QOD), ORAL
     Route: 048
     Dates: start: 19670101
  3. KEPPRA [Suspect]
     Indication: CONVULSION
     Dosage: 1000 MG (500 MG, 2 IN 1 D)
     Dates: start: 20050101
  4. COUMADIN [Concomitant]

REACTIONS (5)
  - ANTICONVULSANT DRUG LEVEL DECREASED [None]
  - CONFUSIONAL STATE [None]
  - DEMENTIA ALZHEIMER'S TYPE [None]
  - DIZZINESS [None]
  - HALLUCINATION [None]
